FAERS Safety Report 10254836 (Version 1)
Quarter: 2014Q2

REPORT INFORMATION
  Report Type: Spontaneous
  Country: FR (occurrence: FR)
  Receive Date: 20140624
  Receipt Date: 20140624
  Transmission Date: 20141212
  Serious: Yes (Hospitalization)
  Sender: FDA-Public Use
  Company Number: FR-MERCK-1406FRA008267

PATIENT
  Age: 47 Year
  Sex: Female

DRUGS (2)
  1. CANCIDAS [Suspect]
     Dosage: 50 MG, QD
     Route: 042
     Dates: start: 20140502, end: 20140516
  2. PIPERACILLIN SODIUM (+) TAZOBACTAM SODIUM [Suspect]
     Dosage: 1 DF, QID
     Route: 042
     Dates: start: 20140426, end: 20140513

REACTIONS (1)
  - Agranulocytosis [Recovered/Resolved]
